FAERS Safety Report 23684778 (Version 3)
Quarter: 2024Q2

REPORT INFORMATION
  Report Type: Spontaneous
  Country: US (occurrence: US)
  Receive Date: 20240328
  Receipt Date: 20240625
  Transmission Date: 20240716
  Serious: Yes (Hospitalization, Other)
  Sender: FDA-Public Use
  Company Number: US-BRISTOL-MYERS SQUIBB COMPANY-2024-047578

PATIENT
  Sex: Female

DRUGS (4)
  1. OPDIVO [Suspect]
     Active Substance: NIVOLUMAB
     Indication: Central nervous system melanoma
     Route: 042
     Dates: start: 202402
  2. OPDIVO [Suspect]
     Active Substance: NIVOLUMAB
     Indication: Meningeal neoplasm
  3. YERVOY [Suspect]
     Active Substance: IPILIMUMAB
     Indication: Central nervous system melanoma
     Route: 042
     Dates: start: 202402
  4. YERVOY [Suspect]
     Active Substance: IPILIMUMAB
     Indication: Meningeal neoplasm

REACTIONS (3)
  - Tachycardia [Unknown]
  - Encephalitis [Unknown]
  - Central nervous system lesion [Unknown]

NARRATIVE: CASE EVENT DATE: 20240314
